FAERS Safety Report 14431298 (Version 4)
Quarter: 2019Q2

REPORT INFORMATION
  Report Type: Spontaneous
  Country: US (occurrence: US)
  Receive Date: 20180124
  Receipt Date: 20190422
  Transmission Date: 20190711
  Serious: No
  Sender: FDA-Public Use
  Company Number: US-PFIZER INC-2018027150

PATIENT
  Age: 67 Year
  Sex: Female

DRUGS (2)
  1. XELJANZ [Suspect]
     Active Substance: TOFACITINIB CITRATE
     Indication: RHEUMATOID ARTHRITIS
     Dosage: 5 MG, DAILY (TAKE 1 TABLET BY MOUTH )
     Route: 048
     Dates: start: 201309, end: 201309
  2. XELJANZ [Suspect]
     Active Substance: TOFACITINIB CITRATE
     Dosage: 5 MG, 2X/DAY
     Route: 048
     Dates: start: 201309

REACTIONS (5)
  - Arthralgia [Unknown]
  - Drug ineffective [Not Recovered/Not Resolved]
  - Insomnia [Unknown]
  - Blood iron decreased [Unknown]
  - Weight decreased [Unknown]
